FAERS Safety Report 14568952 (Version 1)
Quarter: 2018Q1

REPORT INFORMATION
  Report Type: Spontaneous
  Country: US (occurrence: US)
  Receive Date: 20180223
  Receipt Date: 20180223
  Transmission Date: 20180509
  Serious: Yes (Other)
  Sender: FDA-Public Use
  Company Number: US-DRREDDYS-USA/USA/17/0092469

PATIENT
  Age: 29 Year
  Sex: Male

DRUGS (1)
  1. MINOCYCLINE HYDROCHLORIDE 100 MG [Suspect]
     Active Substance: MINOCYCLINE HYDROCHLORIDE
     Indication: PAPILLOMA
     Route: 065

REACTIONS (1)
  - Thyroiditis subacute [Recovered/Resolved]
